FAERS Safety Report 16573344 (Version 2)
Quarter: 2019Q3

REPORT INFORMATION
  Report Type: Spontaneous
  Country: US (occurrence: US)
  Receive Date: 20190715
  Receipt Date: 20190828
  Transmission Date: 20191004
  Serious: No
  Sender: FDA-Public Use
  Company Number: US-GLAXOSMITHKLINE-US2019125999

PATIENT
  Sex: Male

DRUGS (1)
  1. FLOVENT [Suspect]
     Active Substance: FLUTICASONE PROPIONATE
     Indication: ASTHMA
     Dosage: UNK, UNK
     Route: 065
     Dates: start: 201808

REACTIONS (2)
  - Wrong technique in device usage process [Unknown]
  - Dental caries [Unknown]
